FAERS Safety Report 5238114-9 (Version None)
Quarter: 2007Q1

REPORT INFORMATION
  Report Type: 
  Country: None (occurrence: None)
  Receive Date: 20070215
  Receipt Date: 20070206
  Transmission Date: 20070707
  Serious: Yes (Death)
  Sender: FDA-Public Use
  Company Number: US-JNJFOC-20070200044

PATIENT
  Age: 6 Decade
  Sex: Male
  Weight: 87.09 kg

DRUGS (1)
  1. FENTANYL TRANSDERMAL SYSTEM [Suspect]
     Indication: RENAL PAIN
     Route: 062

REACTIONS (1)
  - DEATH [None]
